FAERS Safety Report 14284744 (Version 6)
Quarter: 2018Q2

REPORT INFORMATION
  Report Type: Spontaneous
  Country: CA (occurrence: CA)
  Receive Date: 20171214
  Receipt Date: 20180420
  Transmission Date: 20180711
  Serious: Yes (Other)
  Sender: FDA-Public Use
  Company Number: CA-ORION CORPORATION ORION PHARMA-TREX2017-2540

PATIENT
  Age: 60 Year
  Sex: Female

DRUGS (5)
  1. XELJANZ [Suspect]
     Active Substance: TOFACITINIB CITRATE
     Route: 048
     Dates: start: 2018
  2. METHOTREXATE (TRADE NAME UNKNOWN) [Suspect]
     Active Substance: METHOTREXATE
     Route: 065
     Dates: start: 201801
  3. XELJANZ [Suspect]
     Active Substance: TOFACITINIB CITRATE
     Indication: RHEUMATOID ARTHRITIS
     Route: 048
     Dates: start: 20161220, end: 20180217
  4. METHOTREXATE (TRADE NAME UNKNOWN) [Suspect]
     Active Substance: METHOTREXATE
     Indication: RHEUMATOID ARTHRITIS
     Route: 065
     Dates: start: 2014, end: 201801
  5. VITAMIN B12 [Concomitant]
     Active Substance: CYANOCOBALAMIN
     Route: 065

REACTIONS (18)
  - Neck pain [Unknown]
  - Musculoskeletal stiffness [Unknown]
  - Fluid retention [Not Recovered/Not Resolved]
  - Sinusitis [Unknown]
  - Influenza [Not Recovered/Not Resolved]
  - Nasal congestion [Not Recovered/Not Resolved]
  - Muscle spasms [Recovering/Resolving]
  - Perfume sensitivity [Unknown]
  - Cardiac flutter [Not Recovered/Not Resolved]
  - Atrial fibrillation [Recovered/Resolved]
  - Peripheral swelling [Not Recovered/Not Resolved]
  - Ocular discomfort [Unknown]
  - Heart rate irregular [Not Recovered/Not Resolved]
  - Headache [Recovered/Resolved]
  - Pharyngitis streptococcal [Unknown]
  - Migraine [Unknown]
  - Dizziness [Not Recovered/Not Resolved]
  - Rheumatoid arthritis [Recovered/Resolved]

NARRATIVE: CASE EVENT DATE: 201707
